FAERS Safety Report 21078461 (Version 1)
Quarter: 2022Q3

REPORT INFORMATION
  Report Type: Report from Study
  Country: US (occurrence: US)
  Receive Date: 20220713
  Receipt Date: 20220713
  Transmission Date: 20221027
  Serious: No
  Sender: FDA-Public Use
  Company Number: US-VANDA PHARMACEUTICALS, INC-2022TASUS005705

PATIENT
  Sex: Male
  Weight: 192.74 kg

DRUGS (2)
  1. HETLIOZ [Suspect]
     Active Substance: TASIMELTEON
     Indication: Non-24-hour sleep-wake disorder
     Dosage: 20 MILLIGRAM, QHS, EVERY 24 HOURS ONE HOUR BEFORE BEDTIME
     Route: 048
  2. BELSOMRA [Concomitant]
     Active Substance: SUVOREXANT
     Indication: Product used for unknown indication

REACTIONS (1)
  - Inappropriate schedule of product administration [Unknown]
